FAERS Safety Report 19255158 (Version 2)
Quarter: 2021Q2

REPORT INFORMATION
  Report Type: Spontaneous
  Country: GB (occurrence: GB)
  Receive Date: 20210513
  Receipt Date: 20210629
  Transmission Date: 20210717
  Serious: Yes (Other)
  Sender: FDA-Public Use
  Company Number: GB-EMD SERONO-9237849

PATIENT
  Age: 80 Year
  Sex: Male

DRUGS (2)
  1. INLYTA [Suspect]
     Active Substance: AXITINIB
     Indication: CLEAR CELL RENAL CELL CARCINOMA
     Route: 048
     Dates: start: 20200213
  2. AVELUMAB [Suspect]
     Active Substance: AVELUMAB
     Indication: CLEAR CELL RENAL CELL CARCINOMA
     Route: 042
     Dates: start: 20200213

REACTIONS (1)
  - Pleural effusion [Recovered/Resolved]

NARRATIVE: CASE EVENT DATE: 20200221
